FAERS Safety Report 7098180-5 (Version None)
Quarter: 2010Q4

REPORT INFORMATION
  Report Type: 
  Country: None (occurrence: None)
  Receive Date: 20101112
  Receipt Date: 20101109
  Transmission Date: 20110411
  Serious: Yes (Other)
  Sender: FDA-Public Use
  Company Number: DE-BRISTOL-MYERS SQUIBB COMPANY-15311533

PATIENT
  Age: 54 Year
  Sex: Female
  Weight: 100 kg

DRUGS (3)
  1. ABILIFY [Suspect]
     Indication: PSYCHOTIC DISORDER
     Dosage: REDUCED TO 5MG
     Route: 048
  2. ZYPREXA [Suspect]
  3. PERPHENAZINE [Suspect]

REACTIONS (3)
  - BREAST DISCOMFORT [None]
  - BREAST PAIN [None]
  - PSYCHOTIC DISORDER [None]
